FAERS Safety Report 5319670-9 (Version None)
Quarter: 2007Q2

REPORT INFORMATION
  Report Type: 
  Country: None (occurrence: None)
  Receive Date: 20070508
  Receipt Date: 20070504
  Transmission Date: 20071010
  Serious: Yes (Hospitalization, Other)
  Sender: FDA-Public Use
  Company Number: US-MERCK-0611USA04433

PATIENT
  Age: 82 Year
  Sex: Male

DRUGS (2)
  1. JANUVIA [Suspect]
     Indication: DIABETES MELLITUS
     Route: 065
     Dates: start: 20060101, end: 20061101
  2. INSULIN [Concomitant]
     Route: 065

REACTIONS (1)
  - BLOOD GLUCOSE DECREASED [None]
